FAERS Safety Report 12180249 (Version 1)
Quarter: 2016Q1

REPORT INFORMATION
  Report Type: Spontaneous
  Country: US (occurrence: None)
  Receive Date: 20160314
  Receipt Date: 20160314
  Transmission Date: 20160526
  Serious: No
  Sender: FDA-Public Use
  Company Number: None

PATIENT
  Age: 20 Year
  Sex: Male
  Weight: 69.85 kg

DRUGS (10)
  1. ALEVE [Suspect]
     Active Substance: NAPROXEN SODIUM
     Indication: PYREXIA
     Dosage: 1 TWICE DAILY TAKEN BY MOUTH
     Route: 048
  2. ALEEVE D [Concomitant]
  3. BENEFIBER [Concomitant]
     Active Substance: STARCH, WHEAT
  4. ZOFRAN [Suspect]
     Active Substance: ONDANSETRON HYDROCHLORIDE
     Indication: NAUSEA
     Dosage: 1 PILL 6X TAKEN BY MOUTH
     Route: 048
  5. GOLDWAY [Concomitant]
  6. GAS RELIEF [Concomitant]
     Active Substance: DIMETHICONE
  7. MEGAMEN SPORT [Concomitant]
  8. ALEVE [Suspect]
     Active Substance: NAPROXEN SODIUM
     Indication: PAIN
     Dosage: 1 TWICE DAILY TAKEN BY MOUTH
     Route: 048
  9. AMINO CORE [Concomitant]
  10. XO EXPLODE [Concomitant]

REACTIONS (5)
  - Chest pain [None]
  - Scrotal swelling [None]
  - Scrotal erythema [None]
  - Dyspnoea [None]
  - Throat tightness [None]

NARRATIVE: CASE EVENT DATE: 20160311
